FAERS Safety Report 7969129-5 (Version None)
Quarter: 2011Q4

REPORT INFORMATION
  Report Type: 
  Country: None (occurrence: None)
  Receive Date: 20111209
  Receipt Date: 20111130
  Transmission Date: 20120403
  Serious: Yes (Other)
  Sender: FDA-Public Use
  Company Number: JP-ROCHE-1005781

PATIENT
  Sex: Female

DRUGS (7)
  1. PREDNISOLONE SODIUM SUCCINATE INJ [Concomitant]
     Indication: PROPHYLAXIS
     Route: 042
     Dates: start: 20081211
  2. ACTEMRA [Suspect]
     Route: 041
     Dates: start: 20090305, end: 20101014
  3. FAMOTIDINE [Concomitant]
     Indication: PROPHYLAXIS
     Route: 048
  4. PREDNISOLONE [Concomitant]
     Indication: RHEUMATOID ARTHRITIS
     Route: 048
  5. ALENDRONATE SODIUM [Concomitant]
     Indication: PROPHYLAXIS
     Route: 048
  6. ACTEMRA [Suspect]
     Indication: RHEUMATOID ARTHRITIS
     Route: 041
     Dates: start: 20081211, end: 20090205
  7. ACTEMRA [Suspect]
     Dosage: DOSAGE IS UNCERTAIN.
     Route: 041
     Dates: start: 20110106

REACTIONS (1)
  - CHOLELITHIASIS [None]
